FAERS Safety Report 20855752 (Version 1)
Quarter: 2022Q2

REPORT INFORMATION
  Report Type: Spontaneous
  Country: US (occurrence: None)
  Receive Date: 20220520
  Receipt Date: 20220520
  Transmission Date: 20220720
  Serious: Yes (Hospitalization)
  Sender: FDA-Public Use
  Company Number: None

PATIENT
  Sex: Female

DRUGS (13)
  1. KESIMPTA [Suspect]
     Active Substance: OFATUMUMAB
     Indication: Psoriasis
     Dosage: 20 MG/0.4ML??INJECT 20 MG UNDER THE SKIN (SUBCUTANEOUS  INJECTION) EVERY MONTH?
     Route: 058
     Dates: start: 20211230
  2. ADDERALL [Concomitant]
  3. BACLOFEN [Concomitant]
     Active Substance: BACLOFEN
  4. CELECOXIB [Concomitant]
  5. GABAPENTIN [Concomitant]
     Active Substance: GABAPENTIN
  6. GLATIRAMER [Concomitant]
     Active Substance: GLATIRAMER
  7. GLATIRAMER ACETATE [Concomitant]
  8. METFORMIN [Concomitant]
     Active Substance: METFORMIN HYDROCHLORIDE
  9. METFORMIN [Concomitant]
  10. NORCO [Concomitant]
     Active Substance: ACETAMINOPHEN\HYDROCODONE BITARTRATE
  11. OTEZLA [Concomitant]
     Active Substance: APREMILAST
  12. PAROXETINE [Concomitant]
  13. ZOLOFT [Concomitant]

REACTIONS (1)
  - Disease recurrence [None]
